FAERS Safety Report 6284027-3 (Version None)
Quarter: 2009Q3

REPORT INFORMATION
  Report Type: 
  Country: None (occurrence: None)
  Receive Date: 20090727
  Receipt Date: 20090716
  Transmission Date: 20100115
  Serious: Yes (Hospitalization)
  Sender: FDA-Public Use
  Company Number: US-BIOGENIDEC-2007BI016456

PATIENT
  Age: 72 Year
  Sex: Female
  Weight: 88 kg

DRUGS (2)
  1. AVONEX [Suspect]
     Indication: MULTIPLE SCLEROSIS
     Route: 030
  2. AVONEX [Suspect]
     Route: 030
     Dates: start: 19991201

REACTIONS (11)
  - ASTHENIA [None]
  - DIABETES MELLITUS [None]
  - DYSSTASIA [None]
  - LIPIDS INCREASED [None]
  - LOCALISED INFECTION [None]
  - MULTIPLE SCLEROSIS RELAPSE [None]
  - MUSCLE SPASTICITY [None]
  - MUSCULOSKELETAL STIFFNESS [None]
  - PERIPHERAL VASCULAR DISORDER [None]
  - SKIN ULCER [None]
  - WOUND [None]
